FAERS Safety Report 8990362 (Version 4)
Quarter: 2013Q1

REPORT INFORMATION
  Report Type: Spontaneous
  Country: GB (occurrence: GB)
  Receive Date: 20121228
  Receipt Date: 20130326
  Transmission Date: 20140127
  Serious: Yes (Death, Hospitalization, Other)
  Sender: FDA-Public Use
  Company Number: GB-MERCK-1212GBR007818

PATIENT
  Age: 58 Year
  Sex: Male
  Weight: 70 kg

DRUGS (21)
  1. ISENTRESS [Suspect]
     Indication: HIV INFECTION
     Dosage: 400 MG, BID
     Route: 048
     Dates: start: 20120816, end: 20120917
  2. ISENTRESS [Interacting]
     Dosage: UNK
  3. ABACAVIR [Suspect]
     Indication: HIV INFECTION
     Dosage: 600 MG, QD
     Route: 048
     Dates: start: 20120816, end: 20120917
  4. DAPSONE [Suspect]
     Indication: PRODUCT USED FOR UNKNOWN INDICATION
     Dosage: UNK
     Dates: start: 20120830, end: 20120910
  5. DARUNAVIR [Interacting]
     Indication: HIV INFECTION
     Dosage: 800 MG, QD
     Route: 048
     Dates: start: 20120816, end: 20120917
  6. KALETRA [Suspect]
     Indication: HIV INFECTION
     Dosage: UNK UNK, BID
     Route: 048
     Dates: start: 20121019
  7. SEPTRIN [Suspect]
     Indication: PRODUCT USED FOR UNKNOWN INDICATION
     Dosage: 960 MG, QD
     Route: 065
     Dates: start: 20120803, end: 20120830
  8. KIVEXA [Suspect]
     Indication: HIV INFECTION
     Dosage: 1 DF, QD
     Route: 065
     Dates: start: 20121109
  9. NORVIR [Suspect]
     Indication: HIV INFECTION
     Dosage: 100 MG, QD
     Route: 048
     Dates: start: 20120816, end: 20120917
  10. CLARITHROMYCIN [Concomitant]
     Indication: PRODUCT USED FOR UNKNOWN INDICATION
     Dosage: UNK
     Route: 065
     Dates: start: 20121011
  11. ACYCLOVIR [Concomitant]
     Indication: PRODUCT USED FOR UNKNOWN INDICATION
     Dosage: 400 MG, UNK
     Route: 065
     Dates: start: 20121011
  12. ATORVASTATIN [Concomitant]
     Indication: PRODUCT USED FOR UNKNOWN INDICATION
     Dosage: 10 MG, QD
     Route: 065
     Dates: start: 20120925
  13. AZITHROMYCIN [Concomitant]
     Indication: PRODUCT USED FOR UNKNOWN INDICATION
     Dosage: 1250 MG, QW
     Route: 065
  14. BISOPROLOL [Concomitant]
     Indication: PRODUCT USED FOR UNKNOWN INDICATION
     Dosage: 5 MG, QD
     Route: 065
  15. FLUCONAZOLE [Concomitant]
     Indication: PRODUCT USED FOR UNKNOWN INDICATION
     Dosage: UNK
     Route: 065
     Dates: start: 20121011
  16. NIFEDIPINE [Concomitant]
     Indication: PRODUCT USED FOR UNKNOWN INDICATION
     Dosage: 10 MG, QD
     Route: 065
     Dates: start: 20120928
  17. PIRITON [Concomitant]
     Indication: PRODUCT USED FOR UNKNOWN INDICATION
     Dosage: UNK UNK, PRN
     Route: 065
  18. PREDNISOLONE [Concomitant]
     Indication: PRODUCT USED FOR UNKNOWN INDICATION
     Dosage: 50 MG, UNK
     Dates: start: 20121007
  19. PREDNISOLONE [Concomitant]
     Dosage: UNK MG, UNK
     Route: 065
     Dates: start: 20121007
  20. PREDNISOLONE [Concomitant]
     Dosage: 40 MG, UNK
  21. RANITIDINE [Concomitant]
     Indication: PRODUCT USED FOR UNKNOWN INDICATION
     Dosage: 300 MG, QM
     Route: 065

REACTIONS (32)
  - Toxic epidermal necrolysis [Fatal]
  - Drug reaction with eosinophilia and systemic symptoms [Not Recovered/Not Resolved]
  - Abdominal pain [Unknown]
  - Alanine aminotransferase abnormal [Unknown]
  - Blood alkaline phosphatase abnormal [Unknown]
  - Coronary artery disease [Unknown]
  - C-reactive protein increased [Unknown]
  - Drug interaction [Unknown]
  - Oedema [Unknown]
  - Eosinophil count increased [Unknown]
  - Pyrexia [Fatal]
  - Pruritus generalised [Unknown]
  - HIV associated nephropathy [Unknown]
  - Hypotension [Unknown]
  - Liver disorder [Fatal]
  - Induration [Unknown]
  - Liver function test abnormal [Fatal]
  - Lymphocyte count increased [Unknown]
  - Rash maculo-papular [Fatal]
  - Metabolic acidosis [Unknown]
  - Nausea [Unknown]
  - Platelet count decreased [Fatal]
  - Rash [Fatal]
  - Renal impairment [Unknown]
  - Dermatitis [Fatal]
  - Skin exfoliation [Fatal]
  - Tachycardia [Unknown]
  - Thrombocytopenia [Unknown]
  - Malaise [Unknown]
  - Diarrhoea [Unknown]
  - Asthenia [Unknown]
  - White blood cell count increased [Unknown]
